FAERS Safety Report 7575345-7 (Version None)
Quarter: 2011Q2

REPORT INFORMATION
  Report Type: 
  Country: None (occurrence: None)
  Receive Date: 20110627
  Receipt Date: 20110622
  Transmission Date: 20111010
  Serious: Yes (Hospitalization)
  Sender: FDA-Public Use
  Company Number: BR-PFIZER INC-2011138669

PATIENT
  Age: 69 Year
  Sex: Male

DRUGS (5)
  1. CAPTOPRIL [Concomitant]
     Dosage: UNK
     Dates: start: 20050101
  2. LYRICA [Suspect]
     Indication: PAIN
     Dosage: 75 MG (1 CAPSULE), 1X/DAY
     Route: 048
     Dates: start: 20100331
  3. METFORMIN HYDROCHLORIDE [Concomitant]
     Dosage: UNK
     Dates: start: 20050101
  4. DILACORON [Concomitant]
     Dosage: UNK
     Dates: start: 20050101
  5. ALPRAZOLAM [Concomitant]
     Dosage: UNK
     Dates: start: 20050101

REACTIONS (2)
  - PERICARDIAL DISEASE [None]
  - SWELLING [None]
